FAERS Safety Report 5201657-8 (Version None)
Quarter: 2007Q1

REPORT INFORMATION
  Report Type: 
  Country: None (occurrence: None)
  Receive Date: 20070104
  Receipt Date: 20061220
  Transmission Date: 20070707
  Serious: Yes (Other)
  Sender: FDA-Public Use
  Company Number: 2006AL004064

PATIENT
  Age: 54 Year
  Sex: Male

DRUGS (47)
  1. LORAZEPAM [Suspect]
     Dosage: 2 MG;X1;PO
     Route: 048
  2. CEFTRIAXONE [Concomitant]
  3. DOBUTAMINE [Concomitant]
  4. VITAMIN K [Concomitant]
  5. ALFENTANIL [Concomitant]
  6. FLUCONAZOLE [Concomitant]
  7. LACTULOSE [Concomitant]
  8. OMEPRAZOLE [Concomitant]
  9. MUPIROCIN [Concomitant]
  10. TRICLOSAN [Concomitant]
  11. PIRITON [Concomitant]
  12. AMOXICILLIN [Concomitant]
  13. TINZAPARIN [Concomitant]
  14. FUROSEMIDE [Concomitant]
  15. LANSOPRAZOLE [Concomitant]
  16. POTASSIUM CHLORIDE [Concomitant]
  17. SODIUM CHLORIDE [Concomitant]
  18. SODIUM BICARBONATE [Concomitant]
  19. CALCIUM GLUCONATE [Concomitant]
  20. MAGNESIUM SULFATE [Concomitant]
  21. POTASSIUM CHLORIDE [Concomitant]
  22. THIAMINE [Concomitant]
  23. FRAGMIN [Concomitant]
  24. CLEXANE [Concomitant]
  25. HYDROCORTISONE [Concomitant]
  26. PARACETAMOL [Concomitant]
  27. ACTRAPID [Concomitant]
  28. SALBUTAMOL [Concomitant]
  29. NORADRENALINE [Concomitant]
  30. PROPOFOL [Concomitant]
  31. CALCIUM CHLORIDE [Concomitant]
  32. POTASSIUM PHOSPHATES [Concomitant]
  33. SILVER SULPHADIAZINE [Concomitant]
  34. FUROSEMIDE [Concomitant]
  35. SIMVASTATIN [Concomitant]
  36. ASPIRIN [Concomitant]
  37. AMOXICILLIN [Concomitant]
  38. AMOXICILLIN + CLAVULANATE POTASSIUM [Concomitant]
  39. ZOPICLONE [Concomitant]
  40. MIDODRINE [Concomitant]
  41. METOCLOPRAMIDE [Concomitant]
  42. ATROVENT [Concomitant]
  43. ERYTHROMYCIN [Concomitant]
  44. VANCOMYCIN [Concomitant]
  45. CIPROFLOXACIN [Concomitant]
  46. PANTOPRAZOLE SODIUM [Concomitant]
  47. TAZOCIN [Concomitant]

REACTIONS (1)
  - TOXIC EPIDERMAL NECROLYSIS [None]
